FAERS Safety Report 19651967 (Version 1)
Quarter: 2021Q3

REPORT INFORMATION
  Report Type: Report from Study
  Country: US (occurrence: US)
  Receive Date: 20210803
  Receipt Date: 20210803
  Transmission Date: 20211014
  Serious: Yes (Other)
  Sender: FDA-Public Use
  Company Number: US-ASTELLAS-2021US028705

PATIENT
  Age: 61 Year
  Sex: Male

DRUGS (2)
  1. ASG?22CE [Suspect]
     Active Substance: ENFORTUMAB VEDOTIN
     Indication: TRANSITIONAL CELL CARCINOMA
     Dosage: 1.25 MG/KG, CYCLIC (DAYS 1,8,15 Q28D)
     Route: 042
     Dates: start: 20160701
  2. ASG?22CE [Suspect]
     Active Substance: ENFORTUMAB VEDOTIN
     Dosage: 1 MG/KG, CYCLIC (DAYS 1,8,15 Q28D)
     Route: 042
     Dates: end: 20210610

REACTIONS (3)
  - Fatigue [Recovering/Resolving]
  - Thrombocytopenia [Recovering/Resolving]
  - Neuropathy peripheral [Recovering/Resolving]

NARRATIVE: CASE EVENT DATE: 20170701
